FAERS Safety Report 6252867-2 (Version None)
Quarter: 2009Q2

REPORT INFORMATION
  Report Type: 
  Country: None (occurrence: None)
  Receive Date: 20090629
  Receipt Date: 20090622
  Transmission Date: 20091009
  Serious: Yes (Hospitalization)
  Sender: FDA-Public Use
  Company Number: 2009-GWUS-0433

PATIENT
  Age: 69 Year
  Sex: Female
  Weight: 62.5 kg

DRUGS (7)
  1. FLECAINIDE ACETATE [Suspect]
     Indication: ATRIAL FIBRILLATION
     Dosage: 100MG - BID - ORAL
     Route: 048
  2. CARVEDILOL [Concomitant]
  3. WARFARIN SODIUM [Concomitant]
  4. LEVOTHYROXINE SODIUM [Concomitant]
  5. PANTOPRAZOLE SODIUM [Concomitant]
  6. PAROXETINE HCL [Concomitant]
  7. FOLIC ACID [Concomitant]

REACTIONS (9)
  - BLOOD CREATININE INCREASED [None]
  - CONFUSIONAL STATE [None]
  - DECREASED APPETITE [None]
  - DIET REFUSAL [None]
  - DRUG INTERACTION [None]
  - DRUG TOXICITY [None]
  - PARANOIA [None]
  - SCREAMING [None]
  - SOCIAL AVOIDANT BEHAVIOUR [None]
